FAERS Safety Report 19950497 (Version 1)
Quarter: 2021Q4

REPORT INFORMATION
  Report Type: Spontaneous
  Country: NL (occurrence: DE)
  Receive Date: 20211013
  Receipt Date: 20211013
  Transmission Date: 20220303
  Serious: Yes (Hospitalization)
  Sender: FDA-Public Use
  Company Number: DE-BAUSCH-BL-2021-032691/DE-002147023-NVSC2021DE212325

PATIENT
  Sex: Female
  Weight: 64.1 kg

DRUGS (48)
  1. ACETAMINOPHEN [Suspect]
     Active Substance: ACETAMINOPHEN
     Indication: Procedural pain
     Dosage: UNK
     Route: 065
     Dates: start: 20210817
  2. FILGOTINIB [Suspect]
     Active Substance: FILGOTINIB
     Indication: Rheumatoid arthritis
     Dosage: FILGOTINIB VS PLACEBO
     Route: 048
     Dates: start: 20190402, end: 20190516
  3. FILGOTINIB [Suspect]
     Active Substance: FILGOTINIB
     Route: 048
     Dates: start: 20180903, end: 20190226
  4. FILGOTINIB [Suspect]
     Active Substance: FILGOTINIB
     Route: 048
     Dates: start: 20190402, end: 20190516
  5. FILGOTINIB [Suspect]
     Active Substance: FILGOTINIB
     Route: 048
     Dates: start: 20190828, end: 20190905
  6. FILGOTINIB [Suspect]
     Active Substance: FILGOTINIB
     Route: 048
     Dates: start: 20190307, end: 20190318
  7. FILGOTINIB [Suspect]
     Active Substance: FILGOTINIB
     Route: 048
     Dates: start: 20190927, end: 20210131
  8. FILGOTINIB [Suspect]
     Active Substance: FILGOTINIB
     Route: 048
     Dates: start: 20190611, end: 20190823
  9. FILGOTINIB [Suspect]
     Active Substance: FILGOTINIB
     Route: 048
     Dates: start: 20180503, end: 20180512
  10. FILGOTINIB [Suspect]
     Active Substance: FILGOTINIB
     Route: 048
     Dates: start: 20190402, end: 20190516
  11. FILGOTINIB [Suspect]
     Active Substance: FILGOTINIB
     Route: 048
     Dates: start: 20190307, end: 20190318
  12. FILGOTINIB [Suspect]
     Active Substance: FILGOTINIB
     Route: 048
     Dates: start: 20180503, end: 20180512
  13. FILGOTINIB [Suspect]
     Active Substance: FILGOTINIB
     Route: 048
     Dates: start: 20180514, end: 20180901
  14. FILGOTINIB [Suspect]
     Active Substance: FILGOTINIB
     Route: 048
     Dates: start: 20190307, end: 20190318
  15. FILGOTINIB [Suspect]
     Active Substance: FILGOTINIB
     Route: 048
     Dates: start: 20180903, end: 20190226
  16. FILGOTINIB [Suspect]
     Active Substance: FILGOTINIB
     Route: 048
     Dates: start: 20190611, end: 20190823
  17. FILGOTINIB [Suspect]
     Active Substance: FILGOTINIB
     Route: 048
     Dates: start: 20190927, end: 20210131
  18. FILGOTINIB [Suspect]
     Active Substance: FILGOTINIB
     Route: 048
     Dates: start: 20190828, end: 20190905
  19. FILGOTINIB [Suspect]
     Active Substance: FILGOTINIB
     Route: 048
     Dates: start: 20180514, end: 20180901
  20. FILGOTINIB [Suspect]
     Active Substance: FILGOTINIB
     Indication: Rheumatoid arthritis
     Dosage: 200 MG, QD
     Route: 048
     Dates: start: 20210831
  21. FILGOTINIB [Suspect]
     Active Substance: FILGOTINIB
     Route: 048
     Dates: start: 20210201, end: 20210809
  22. FILGOTINIB [Suspect]
     Active Substance: FILGOTINIB
     Dosage: 200 MG, QD
     Route: 065
     Dates: start: 20190307, end: 20190318
  23. FILGOTINIB [Suspect]
     Active Substance: FILGOTINIB
     Dosage: 200 MG, QD
     Route: 048
     Dates: start: 20190402, end: 20190516
  24. FILGOTINIB [Suspect]
     Active Substance: FILGOTINIB
     Dosage: 200 MG, QD
     Route: 048
     Dates: start: 20190402, end: 20190516
  25. FILGOTINIB [Suspect]
     Active Substance: FILGOTINIB
     Dosage: 200 MG, QD
     Route: 048
     Dates: start: 20190611, end: 20190823
  26. FILGOTINIB [Suspect]
     Active Substance: FILGOTINIB
     Dosage: 200 MG, QD
     Route: 048
     Dates: start: 20190927, end: 20210131
  27. FILGOTINIB [Suspect]
     Active Substance: FILGOTINIB
     Dosage: 100 MG, QD
     Route: 065
     Dates: start: 20190828, end: 20190905
  28. FILGOTINIB [Suspect]
     Active Substance: FILGOTINIB
     Dosage: 200 MG, QD
     Route: 048
     Dates: start: 20180514, end: 20180901
  29. FILGOTINIB [Suspect]
     Active Substance: FILGOTINIB
     Dosage: 100 MG, QD
     Route: 048
     Dates: start: 20180903, end: 20190226
  30. FILGOTINIB [Suspect]
     Active Substance: FILGOTINIB
     Dosage: 100 MG, QD
     Route: 048
     Dates: start: 20190611, end: 20190823
  31. FILGOTINIB [Suspect]
     Active Substance: FILGOTINIB
     Dosage: 100 MG, QD
     Route: 048
     Dates: start: 20180514, end: 20180901
  32. FILGOTINIB [Suspect]
     Active Substance: FILGOTINIB
     Dosage: 200 MG, QD
     Route: 048
     Dates: start: 20180903, end: 20190226
  33. FILGOTINIB [Suspect]
     Active Substance: FILGOTINIB
     Dosage: 100 MG, QD
     Route: 048
     Dates: start: 20190402, end: 20190516
  34. FILGOTINIB [Suspect]
     Active Substance: FILGOTINIB
     Dosage: 100 MG, QD
     Route: 048
     Dates: start: 20190307, end: 20190318
  35. FILGOTINIB [Suspect]
     Active Substance: FILGOTINIB
     Dosage: 100 MG, QD
     Route: 048
     Dates: start: 20190307, end: 20190318
  36. FILGOTINIB [Suspect]
     Active Substance: FILGOTINIB
     Dosage: 100 MG, QD
     Route: 048
     Dates: start: 20180503, end: 20180512
  37. FILGOTINIB [Suspect]
     Active Substance: FILGOTINIB
     Dosage: 100 MG, QD
     Route: 048
     Dates: start: 20190927, end: 20210131
  38. FILGOTINIB [Suspect]
     Active Substance: FILGOTINIB
     Dosage: 200 MG, QD
     Route: 048
     Dates: start: 20180503, end: 20180512
  39. FILGOTINIB [Suspect]
     Active Substance: FILGOTINIB
     Dosage: 200 MG, QD
     Route: 048
     Dates: start: 20190828, end: 20190905
  40. DIHYDROERGOCORNINE MESYLATE\HEPARIN [Suspect]
     Active Substance: DIHYDROERGOCORNINE MESYLATE\HEPARIN
     Indication: Thrombosis prophylaxis
     Dosage: UNK
     Route: 065
     Dates: start: 20210817
  41. TELMISARTAN [Concomitant]
     Active Substance: TELMISARTAN
     Indication: Product used for unknown indication
     Dosage: UNK
     Route: 065
     Dates: start: 20200515
  42. PREDNISOLONE [Concomitant]
     Active Substance: PREDNISOLONE
     Indication: Product used for unknown indication
     Dosage: UNK
     Route: 065
     Dates: start: 20200711
  43. METAMIZOLE SODIUM [Concomitant]
     Active Substance: METAMIZOLE SODIUM
     Indication: Product used for unknown indication
     Dosage: UNK
     Route: 065
     Dates: start: 2014
  44. PANTOPRAZOLE SODIUM [Concomitant]
     Active Substance: PANTOPRAZOLE SODIUM
     Indication: Product used for unknown indication
     Dosage: UNK
     Route: 065
     Dates: start: 2014
  45. FOLIC ACID [Concomitant]
     Active Substance: FOLIC ACID
     Indication: Product used for unknown indication
     Dosage: UNK
     Route: 065
     Dates: start: 199507
  46. CHOLECALCIFEROL [Concomitant]
     Active Substance: CHOLECALCIFEROL
     Indication: Product used for unknown indication
     Dosage: UNK
     Route: 065
     Dates: start: 201609
  47. METHOTREXATE [Concomitant]
     Active Substance: METHOTREXATE
     Indication: Product used for unknown indication
     Dosage: UNK
     Route: 065
     Dates: start: 20200222
  48. SILYBUM MARIANUM FRUIT/ANGELICA ARCHANGELICA ROOT/CARUM CARVI FRUIT/CH [Concomitant]
     Indication: Product used for unknown indication
     Dosage: UNK
     Route: 065
     Dates: start: 20180718

REACTIONS (1)
  - Spinal stenosis [Recovered/Resolved]

NARRATIVE: CASE EVENT DATE: 20210816
